FAERS Safety Report 7413475-0 (Version None)
Quarter: 2011Q2

REPORT INFORMATION
  Report Type: 
  Country: None (occurrence: None)
  Receive Date: 20110413
  Receipt Date: 20110404
  Transmission Date: 20111010
  Serious: Yes (Other)
  Sender: FDA-Public Use
  Company Number: PHHY2011CA28394

PATIENT
  Sex: Female

DRUGS (1)
  1. SANDOSTATIN LAR [Suspect]
     Indication: CARCINOID SYNDROME
     Dosage: 30 MG EVERY 4 WEEKS
     Route: 030
     Dates: start: 20070530

REACTIONS (4)
  - JOINT SWELLING [None]
  - ARTHRALGIA [None]
  - FALL [None]
  - CHEST PAIN [None]
